FAERS Safety Report 9055173 (Version 2)
Quarter: 2013Q1

REPORT INFORMATION
  Report Type: Spontaneous
  Country: US (occurrence: US)
  Receive Date: 20130206
  Receipt Date: 20130211
  Transmission Date: 20140127
  Serious: Yes (Hospitalization)
  Sender: FDA-Public Use
  Company Number: US-JNJFOC-20130117121

PATIENT
  Sex: Female

DRUGS (30)
  1. TYLENOL [Suspect]
     Route: 065
  2. TYLENOL [Suspect]
     Indication: PROPHYLAXIS
     Route: 065
     Dates: end: 20130103
  3. ADVAIR [Suspect]
     Indication: ASTHMA
     Dosage: 250/50 MCG
     Route: 055
     Dates: start: 200104
  4. ADVAIR [Suspect]
     Indication: ASTHMA
     Dosage: 100/50 MCG PROBABLY IN 2001
     Route: 055
     Dates: start: 2001
  5. CEFUROXIME AXETIL [Suspect]
     Indication: PROPHYLAXIS
     Route: 048
     Dates: end: 20130103
  6. PANTOPRAZOLE [Suspect]
     Indication: PRODUCT USED FOR UNKNOWN INDICATION
     Route: 065
  7. LEVAQUIN [Concomitant]
  8. ULTRAM [Concomitant]
  9. FLEXERIL [Concomitant]
  10. ARTHROTEC [Concomitant]
  11. XANAX [Concomitant]
  12. TRAZODONE [Concomitant]
  13. VALIUM [Concomitant]
  14. LEXAPRO [Concomitant]
  15. SINGULAIR [Concomitant]
  16. PROVENTIL [Concomitant]
  17. VANTIN [Concomitant]
  18. ALBUTEROL [Concomitant]
  19. ALLEGRA-D [Concomitant]
  20. ATARAX [Concomitant]
  21. LIDOCAINE [Concomitant]
  22. ENULOSE [Concomitant]
  23. POTASSIUM [Concomitant]
  24. MULTIVITAMINS [Concomitant]
  25. CALCIUM [Concomitant]
  26. ACIDOPHILUS [Concomitant]
  27. DOCUSATE SODIUM [Concomitant]
  28. GAMMAGLOBULIN [Concomitant]
  29. FISH OIL [Concomitant]
  30. ASPIRIN [Concomitant]

REACTIONS (3)
  - Liver function test abnormal [Unknown]
  - Pneumonia [Unknown]
  - Dysphonia [Unknown]
